FAERS Safety Report 26131915 (Version 2)
Quarter: 2025Q4

REPORT INFORMATION
  Report Type: Spontaneous
  Country: EU (occurrence: EU)
  Receive Date: 20251208
  Receipt Date: 20251209
  Transmission Date: 20260118
  Serious: Yes (Other)
  Sender: PFIZER
  Company Number: EU-BRISTOL-MYERS SQUIBB COMPANY-2025-159287

PATIENT
  Age: 59 Year
  Sex: Female

DRUGS (4)
  1. CARBOPLATIN [Suspect]
     Active Substance: CARBOPLATIN
     Indication: Squamous cell carcinoma of lung
     Dosage: UNK, CYCLIC (EVERY 3 WEEKS, C1D1)
     Dates: start: 20241018, end: 20241121
  2. IPILIMUMAB [Suspect]
     Active Substance: IPILIMUMAB
     Indication: Squamous cell carcinoma of lung
     Dosage: UNK, CYCLIC (EVERY 6 WEEKS, C1D1)
     Dates: start: 20241018
  3. NIVOLUMAB [Suspect]
     Active Substance: NIVOLUMAB
     Indication: Squamous cell carcinoma of lung
     Dosage: UNK, CYCLIC (EVERY 3 WEEKS, C1D1)
     Dates: start: 20241018
  4. PACLITAXEL [Suspect]
     Active Substance: PACLITAXEL
     Indication: Squamous cell carcinoma of lung
     Dosage: UNK, CYCLIC (EVERY 3 WEEKS, C1D1)
     Dates: start: 20241018, end: 20241121

REACTIONS (8)
  - Hypothyroidism [Unknown]
  - Chronic cutaneous lupus erythematosus [Unknown]
  - Dry eye [Unknown]
  - Jugular vein thrombosis [Unknown]
  - Device related thrombosis [Unknown]
  - Psoriasis [Unknown]
  - Skin toxicity [Unknown]
  - Off label use [Unknown]

NARRATIVE: CASE EVENT DATE: 20241018
